FAERS Safety Report 10170478 (Version 1)
Quarter: 2014Q2

REPORT INFORMATION
  Report Type: Spontaneous
  Country: IT (occurrence: IT)
  Receive Date: 20140513
  Receipt Date: 20140513
  Transmission Date: 20141212
  Serious: Yes (Hospitalization)
  Sender: FDA-Public Use
  Company Number: PHHY2014IT056728

PATIENT
  Age: 68 Year
  Sex: Female

DRUGS (5)
  1. ZOLEDRONATE [Suspect]
     Indication: ANAPLASTIC THYROID CANCER
     Dosage: 4 MG, MONTHLY
     Route: 041
  2. ZOLEDRONATE [Suspect]
     Indication: METASTASES TO LUNG
  3. ZOLEDRONATE [Suspect]
     Indication: METASTASES TO BONE
  4. CISPLATIN [Concomitant]
     Dosage: 60 MG/M2, UNK
  5. EPIRUBICIN [Concomitant]
     Dosage: 75 MG/M2, UNK

REACTIONS (10)
  - Osteonecrosis of jaw [Recovering/Resolving]
  - Odynophagia [Recovering/Resolving]
  - Mastication disorder [Recovering/Resolving]
  - Tongue injury [Recovering/Resolving]
  - Exposed bone in jaw [Recovering/Resolving]
  - Pain in jaw [Recovering/Resolving]
  - Depressed level of consciousness [Recovering/Resolving]
  - Breath odour [Recovering/Resolving]
  - Oropharyngeal swelling [Recovering/Resolving]
  - Metastases to lung [Unknown]
